FAERS Safety Report 5196552-7 (Version None)
Quarter: 2006Q4

REPORT INFORMATION
  Report Type: 
  Country: None (occurrence: None)
  Receive Date: 20061222
  Receipt Date: 20061206
  Transmission Date: 20070319
  Serious: Yes (Hospitalization)
  Sender: FDA-Public Use
  Company Number: DILAT-06-0602

PATIENT
  Age: 66 Year
  Sex: Male

DRUGS (7)
  1. PROPOFOL [Suspect]
     Indication: SEDATION
     Dosage: 1-3 MG/KG2 PLUS BOLUS
     Route: 002
  2. HALOPERIDOL [Concomitant]
  3. CLONIDIN [Concomitant]
  4. NORADRENALIN [Concomitant]
  5. DOBUTAMIN (DOBUTAMINE HYDROCHLORIDE) [Concomitant]
  6. ACETAMINOPHEN [Concomitant]
  7. PIRITRAMIDE [Concomitant]

REACTIONS (3)
  - ATRIAL FLUTTER [None]
  - GENERAL PHYSICAL HEALTH DETERIORATION [None]
  - PROPOFOL INFUSION SYNDROME [None]
